FAERS Safety Report 20976711 (Version 1)
Quarter: 2022Q2

REPORT INFORMATION
  Report Type: Spontaneous
  Country: US (occurrence: US)
  Receive Date: 20220617
  Receipt Date: 20220617
  Transmission Date: 20220721
  Serious: Yes (Hospitalization, Other)
  Sender: FDA-Public Use
  Company Number: US-NOVARTISPH-NVSC2022US136431

PATIENT
  Sex: Female
  Weight: 2.1 kg

DRUGS (4)
  1. HYDROXYCHLOROQUINE [Suspect]
     Active Substance: HYDROXYCHLOROQUINE
     Indication: Foetal exposure during pregnancy
     Dosage: UNK
     Route: 064
  2. CEFTRIAXONE [Suspect]
     Active Substance: CEFTRIAXONE
     Indication: Foetal exposure during pregnancy
     Dosage: UNK
     Route: 064
  3. AZITHROMYCIN [Suspect]
     Active Substance: AZITHROMYCIN
     Indication: Foetal exposure during pregnancy
     Dosage: UNK
     Route: 064
  4. TOCILIZUMAB [Suspect]
     Active Substance: TOCILIZUMAB
     Indication: Foetal exposure during pregnancy
     Dosage: UNK
     Route: 064

REACTIONS (12)
  - Foetal growth restriction [Unknown]
  - Hypertonia neonatal [Unknown]
  - Hydrocephalus [Unknown]
  - Intraventricular haemorrhage [Unknown]
  - Hyperbilirubinaemia [Unknown]
  - Low birth weight baby [Unknown]
  - Tremor [Unknown]
  - Transient tachypnoea of the newborn [Unknown]
  - Hypoglycaemia [Unknown]
  - Cerebral ventricle dilatation [Unknown]
  - Developmental delay [Unknown]
  - Foetal exposure during pregnancy [Unknown]
